FAERS Safety Report 10535147 (Version 1)
Quarter: 2014Q4

REPORT INFORMATION
  Report Type: Spontaneous
  Country: DE (occurrence: DE)
  Receive Date: 20141022
  Receipt Date: 20141022
  Transmission Date: 20150529
  Serious: Yes (Other)
  Sender: FDA-Public Use
  Company Number: DE-TEVA-515492GER

PATIENT
  Age: 82 Year
  Sex: Male

DRUGS (2)
  1. NIFEDIPIN-RATIOPHARM 20 MG RETARDTABLETTEN [Suspect]
     Active Substance: NIFEDIPINE
     Dosage: 60 MILLIGRAM DAILY; 40 MG IN THE MORNING AND 20 MG IN THE EVENING
     Route: 048
  2. LISINOPRIL-RATIOPHARM 20 MG [Concomitant]
     Dosage: 20 MILLIGRAM DAILY;

REACTIONS (3)
  - Blood pressure increased [Unknown]
  - Road traffic accident [Unknown]
  - Impaired driving ability [Unknown]
